FAERS Safety Report 10422879 (Version 2)
Quarter: 2014Q4

REPORT INFORMATION
  Report Type: Spontaneous
  Country: US (occurrence: US)
  Receive Date: 20140902
  Receipt Date: 20141027
  Transmission Date: 20150528
  Serious: Yes (Other)
  Sender: FDA-Public Use
  Company Number: US-009507513-1409USA000555

PATIENT
  Age: 52 Year
  Sex: Male
  Weight: 99.77 kg

DRUGS (5)
  1. JANUMET [Suspect]
     Active Substance: METFORMIN HYDROCHLORIDE\SITAGLIPTIN PHOSPHATE
     Indication: DIABETES MELLITUS
     Dosage: UNK, BID
     Route: 048
     Dates: start: 20120113, end: 20120410
  2. TRADJENTA [Suspect]
     Active Substance: LINAGLIPTIN
     Dosage: 5 MG, BID
     Route: 048
     Dates: start: 20120410, end: 20120420
  3. ATORVASTATIN [Concomitant]
     Active Substance: ATORVASTATIN
  4. TRICOR [Concomitant]
     Active Substance: FENOFIBRATE
  5. HYDROCHLOROTHIAZIDE (+) VALSARTAN [Concomitant]
     Active Substance: HYDROCHLOROTHIAZIDE\VALSARTAN

REACTIONS (1)
  - Renal failure [Not Recovered/Not Resolved]

NARRATIVE: CASE EVENT DATE: 20120328
